FAERS Safety Report 6257314-2 (Version None)
Quarter: 2009Q3

REPORT INFORMATION
  Report Type: 
  Country: None (occurrence: None)
  Receive Date: 20090701
  Receipt Date: 20090701
  Transmission Date: 20100115
  Serious: Yes (Hospitalization, Other)
  Sender: FDA-Public Use
  Company Number: None

PATIENT
  Sex: Female
  Weight: 68.9467 kg

DRUGS (4)
  1. EFFEXOR XR [Suspect]
     Indication: DEPRESSION
     Dosage: 75 MG EVERY OTHER DAY PO
     Route: 048
     Dates: start: 20020101, end: 20090101
  2. EFFEXOR XR [Suspect]
     Indication: INSOMNIA
     Dosage: 75 MG EVERY OTHER DAY PO
     Route: 048
     Dates: start: 20020101, end: 20090101
  3. EFFEXOR XR [Suspect]
     Indication: DEPRESSION
     Dosage: 37,5 MG EVERY OTHER DAY PO
     Route: 048
     Dates: start: 20020101, end: 20090101
  4. EFFEXOR XR [Suspect]
     Indication: INSOMNIA
     Dosage: 37,5 MG EVERY OTHER DAY PO
     Route: 048
     Dates: start: 20020101, end: 20090101

REACTIONS (29)
  - ALCOHOL USE [None]
  - AMNESIA [None]
  - BLOOD CHOLESTEROL INCREASED [None]
  - BLOOD POTASSIUM DECREASED [None]
  - CHEST PAIN [None]
  - CONDITION AGGRAVATED [None]
  - CONSTIPATION [None]
  - COORDINATION ABNORMAL [None]
  - DEHYDRATION [None]
  - DEPRESSION [None]
  - DISTURBANCE IN ATTENTION [None]
  - DIZZINESS [None]
  - DRUG WITHDRAWAL SYNDROME [None]
  - DRY MOUTH [None]
  - EXOSTOSIS [None]
  - FATIGUE [None]
  - GALLBLADDER DISORDER [None]
  - HAEMORRHAGE [None]
  - HALLUCINATION [None]
  - HEADACHE [None]
  - HEPATIC ENZYME INCREASED [None]
  - HYPERTENSION [None]
  - INCREASED TENDENCY TO BRUISE [None]
  - NAUSEA [None]
  - NIGHTMARE [None]
  - RENAL PAIN [None]
  - SOMNOLENCE [None]
  - SUICIDAL IDEATION [None]
  - WEIGHT INCREASED [None]
